FAERS Safety Report 14971339 (Version 1)
Quarter: 2018Q2

REPORT INFORMATION
  Report Type: Report from Study
  Country: US (occurrence: US)
  Receive Date: 20180604
  Receipt Date: 20180604
  Transmission Date: 20180711
  Serious: Yes (Death)
  Sender: FDA-Public Use
  Company Number: US-ACTELION-A-NJ2018-172922

PATIENT
  Age: 77 Year
  Sex: Female

DRUGS (15)
  1. ADEMPAS [Concomitant]
     Active Substance: RIOCIGUAT
  2. CEFDINIR. [Concomitant]
     Active Substance: CEFDINIR
  3. OPSUMIT [Suspect]
     Active Substance: MACITENTAN
     Indication: PULMONARY ARTERIAL HYPERTENSION
     Dosage: 10 MG, UNK
     Route: 048
  4. FLUTICASONE PROPIONATE. [Concomitant]
     Active Substance: FLUTICASONE PROPIONATE
  5. LEVOTHYROXINE. [Concomitant]
     Active Substance: LEVOTHYROXINE
  6. OMEPRAZOLE. [Concomitant]
     Active Substance: OMEPRAZOLE
  7. MONTELUKAST SODIUM. [Concomitant]
     Active Substance: MONTELUKAST SODIUM
  8. CETIRIZINE HCL [Concomitant]
     Active Substance: CETIRIZINE HYDROCHLORIDE
  9. ANORO ELLIPTA [Concomitant]
     Active Substance: UMECLIDINIUM BROMIDE\VILANTEROL TRIFENATATE
  10. LOSARTAN. [Concomitant]
     Active Substance: LOSARTAN
  11. LOVASTATIN. [Concomitant]
     Active Substance: LOVASTATIN
  12. PREDNISONE. [Concomitant]
     Active Substance: PREDNISONE
  13. GABAPENTIN. [Concomitant]
     Active Substance: GABAPENTIN
  14. ALPRAZOLAM. [Concomitant]
     Active Substance: ALPRAZOLAM
  15. LEVALBUTEROL. [Concomitant]
     Active Substance: LEVALBUTEROL

REACTIONS (1)
  - Death [Fatal]
